FAERS Safety Report 4313650-8 (Version None)
Quarter: 2004Q1

REPORT INFORMATION
  Report Type: 
  Country: None (occurrence: None)
  Receive Date: 20040305
  Receipt Date: 20040225
  Transmission Date: 20041129
  Serious: Yes (Hospitalization)
  Sender: FDA-Public Use
  Company Number: HQWYE504203MAR04

PATIENT
  Age: 44 Year
  Sex: Male

DRUGS (4)
  1. RAPAMUNE [Suspect]
     Indication: INTESTINAL TRANSPLANT
     Dosage: 1 MG 1X PER 1 DAY, ORAL
     Route: 048
  2. TACROLIMUS (TACROLIMUS) [Suspect]
     Indication: INTESTINAL TRANSPLANT
     Dosage: 4 MG 2X PER 1 DAY, ORAL; 2 MG 2X PER 1 DAY
     Route: 048
  3. PREDNISONE [Concomitant]
  4. ASPIRIN [Concomitant]

REACTIONS (5)
  - BLOOD CREATININE INCREASED [None]
  - BLOOD LACTATE DEHYDROGENASE INCREASED [None]
  - HAPTOGLOBIN DECREASED [None]
  - PANCYTOPENIA [None]
  - THROMBOTIC MICROANGIOPATHY [None]
